FAERS Safety Report 9407736 (Version 1)
Quarter: 2013Q3

REPORT INFORMATION
  Report Type: Spontaneous
  Country: FR (occurrence: FR)
  Receive Date: 20130718
  Receipt Date: 20130718
  Transmission Date: 20140515
  Serious: Yes (Hospitalization, Other)
  Sender: FDA-Public Use
  Company Number: FR-ELI_LILLY_AND_COMPANY-FR201307003107

PATIENT
  Age: 73 Year
  Sex: Female

DRUGS (5)
  1. PROZAC [Suspect]
     Indication: DEPRESSION
     Dosage: 10 MG, QD
     Route: 048
     Dates: end: 201303
  2. LEXOMIL [Suspect]
     Indication: ANXIETY
     Dosage: 6 MG, QD
     Route: 048
     Dates: end: 201303
  3. AMLOR [Suspect]
     Indication: HYPERTENSION
     Dosage: 5 MG, QD
     Route: 048
     Dates: end: 201303
  4. CARDENSIEL [Suspect]
     Indication: HYPERTENSION
     Dosage: 10 MG, QD
     Route: 048
  5. COOLMETEC [Suspect]
     Indication: HYPERTENSION
     Dosage: 40MG/12.5MG
     Route: 048
     Dates: end: 201303

REACTIONS (3)
  - Hyponatraemia [Recovered/Resolved]
  - Fall [Unknown]
  - Syncope [Unknown]
